FAERS Safety Report 4990255-7 (Version None)
Quarter: 2006Q2

REPORT INFORMATION
  Report Type: 
  Country: None (occurrence: None)
  Receive Date: 20060503
  Receipt Date: 20060407
  Transmission Date: 20061013
  Serious: Yes (Hospitalization)
  Sender: FDA-Public Use
  Company Number: US-GLAXOSMITHKLINE-A0600935A

PATIENT
  Age: 59 Year
  Sex: Female
  Weight: 64.1 kg

DRUGS (4)
  1. LOTRONEX [Suspect]
     Indication: IRRITABLE BOWEL SYNDROME
     Route: 048
     Dates: start: 20031201, end: 20060201
  2. PREMARIN [Concomitant]
  3. ZYRTEC [Concomitant]
  4. ASCORBIC ACID [Concomitant]

REACTIONS (4)
  - ANAL SKIN TAGS [None]
  - DIVERTICULUM INTESTINAL [None]
  - MUSCLE HYPERTROPHY [None]
  - RECTAL HAEMORRHAGE [None]
